FAERS Safety Report 8425123-1 (Version None)
Quarter: 2012Q2

REPORT INFORMATION
  Report Type: 
  Country: None (occurrence: None)
  Receive Date: 20120611
  Receipt Date: 20120604
  Transmission Date: 20120825
  Serious: Yes (Other)
  Sender: FDA-Public Use
  Company Number: US-PFIZER INC-2012113151

PATIENT
  Sex: Male
  Weight: 96.59 kg

DRUGS (8)
  1. SUTENT [Suspect]
     Indication: RENAL CELL CARCINOMA
     Dosage: 50 MG, ONE DAILY X 4 WEEKS, OFF 2 WEEKS AND REPEAT-PENDING PA
     Route: 048
     Dates: start: 20120426, end: 20120524
  2. DIOVAN HCT [Concomitant]
     Dosage: 160-12.5 MG, ONE TABLET DAILY
     Dates: start: 20120508
  3. METOPROLOL TARTRATE [Concomitant]
     Dosage: 25 MG, 2X/DAY (TAKE 1/2 TABLET BID)
     Route: 048
     Dates: start: 20120227
  4. SINGULAIR [Concomitant]
     Dosage: 10 MG, 1X/DAY
     Route: 048
     Dates: start: 20100614
  5. COMBIVENT [Concomitant]
     Dosage: 18-103 MCG/ACT, 1-2 PUFFS Q 4-6HRS
     Dates: start: 20111019
  6. ASPIRIN [Concomitant]
     Dosage: 325 MG, 1X/DAY
     Route: 048
     Dates: start: 20070807
  7. SPIRIVA [Concomitant]
     Dosage: UNK
     Dates: start: 20120322
  8. PROAIR HFA [Concomitant]
     Dosage: 108 MCG/ACT, 2 PUFFS Q4H

REACTIONS (4)
  - EYELID IRRITATION [None]
  - BURNING SENSATION [None]
  - BLOOD PRESSURE INCREASED [None]
  - DYSPEPSIA [None]
